FAERS Safety Report 24692426 (Version 2)
Quarter: 2024Q4

REPORT INFORMATION
  Report Type: Spontaneous
  Country: US (occurrence: US)
  Receive Date: 20241203
  Receipt Date: 20241220
  Transmission Date: 20250115
  Serious: Yes (Hospitalization)
  Sender: SANOFI AVENTIS
  Company Number: US-SA-2024SA355726

PATIENT
  Age: 77 Year
  Sex: Female
  Weight: 58.51 kg

DRUGS (16)
  1. DUPIXENT [Suspect]
     Active Substance: DUPILUMAB
     Indication: Neurodermatitis
     Dosage: 300 MG, QOW
     Route: 058
  2. AMLODIPINE BESYLATE [Concomitant]
     Active Substance: AMLODIPINE BESYLATE
  3. LORATADINE [Concomitant]
     Active Substance: LORATADINE
  4. VITAMIN D2 [Concomitant]
     Active Substance: ERGOCALCIFEROL
  5. ROSUVASTATIN CALCIUM [Concomitant]
     Active Substance: ROSUVASTATIN CALCIUM
  6. ESZOPICLONE [Concomitant]
     Active Substance: ESZOPICLONE
  7. NAMENDA [Concomitant]
     Active Substance: MEMANTINE HYDROCHLORIDE
  8. MEMANTINE [Concomitant]
     Active Substance: MEMANTINE
     Dosage: UNK
  9. OMEPRAZOLE [Concomitant]
     Active Substance: OMEPRAZOLE
     Dosage: UNK
  10. FAMOTIDINE [Concomitant]
     Active Substance: FAMOTIDINE
     Dosage: UNK
  11. DULOXETINE [Concomitant]
     Active Substance: DULOXETINE
     Dosage: UNK
  12. ONDANSETRON [Concomitant]
     Active Substance: ONDANSETRON
  13. MECLIZINE [Concomitant]
     Active Substance: MECLIZINE HYDROCHLORIDE
  14. PREDNISONE [Concomitant]
     Active Substance: PREDNISONE
  15. DOXYCYCLINE HYCLATE [Concomitant]
     Active Substance: DOXYCYCLINE HYCLATE
  16. DONEPEZIL [Concomitant]
     Active Substance: DONEPEZIL

REACTIONS (3)
  - Hospitalisation [Unknown]
  - Dermatitis acneiform [Unknown]
  - Rash [Unknown]

NARRATIVE: CASE EVENT DATE: 20241101
